FAERS Safety Report 7353060-2 (Version None)
Quarter: 2011Q1

REPORT INFORMATION
  Report Type: 
  Country: None (occurrence: None)
  Receive Date: 20110315
  Receipt Date: 20110304
  Transmission Date: 20110831
  Serious: Yes (Hospitalization)
  Sender: FDA-Public Use
  Company Number: B0700193A

PATIENT
  Age: 60 Year
  Sex: Female
  Weight: 81.4 kg

DRUGS (5)
  1. METFORMIN [Concomitant]
     Dates: start: 20070101, end: 20070401
  2. AVANDIA [Suspect]
     Indication: DIABETES MELLITUS
     Route: 048
  3. THYROID MEDICATION [Concomitant]
  4. ESTRACE [Concomitant]
  5. AVANDARYL [Suspect]
     Indication: DIABETES MELLITUS
     Route: 048
     Dates: start: 20060401, end: 20071001

REACTIONS (2)
  - CARDIAC FAILURE CONGESTIVE [None]
  - MYOCARDIAL INFARCTION [None]
